FAERS Safety Report 19493441 (Version 4)
Quarter: 2022Q1

REPORT INFORMATION
  Report Type: Spontaneous
  Country: US (occurrence: US)
  Receive Date: 20210705
  Receipt Date: 20220131
  Transmission Date: 20220423
  Serious: No
  Sender: FDA-Public Use
  Company Number: US-TAKEDA-2021TUS041580

PATIENT
  Age: 10 Year
  Sex: Male

DRUGS (1)
  1. ELAPRASE [Suspect]
     Active Substance: IDURSULFASE
     Indication: Product used for unknown indication
     Route: 065

REACTIONS (8)
  - Crying [Unknown]
  - Ear odour [Unknown]
  - Blood pressure abnormal [Unknown]
  - Mass [Unknown]
  - Furuncle [Unknown]
  - Feeling cold [Unknown]
  - Skin discolouration [Unknown]
  - Cough [Unknown]

NARRATIVE: CASE EVENT DATE: 20210621
